FAERS Safety Report 6623879-1 (Version None)
Quarter: 2010Q1

REPORT INFORMATION
  Report Type: 
  Country: None (occurrence: None)
  Receive Date: 20100310
  Receipt Date: 20100303
  Transmission Date: 20100710
  Serious: Yes (Other)
  Sender: FDA-Public Use
  Company Number: PHHY2010BR05134

PATIENT
  Sex: Male

DRUGS (7)
  1. DIOVAN [Suspect]
     Dosage: 1 TABLET (160 MG) DAILY
  2. DIOVAN [Suspect]
     Dosage: 320 MG
  3. LIPITOR [Concomitant]
     Dosage: 40 MG, QD
     Route: 048
  4. SELOZOK [Concomitant]
     Dosage: 50 MG, QD
     Route: 048
  5. ASPIRIN [Concomitant]
     Dosage: 100 MG, QD
     Route: 048
  6. VASOGARD [Concomitant]
     Dosage: UNK
  7. VENALOT (COUMARIN) [Concomitant]
     Dosage: UNK

REACTIONS (5)
  - BLOOD PRESSURE INADEQUATELY CONTROLLED [None]
  - BLOOD PRESSURE INCREASED [None]
  - OEDEMA PERIPHERAL [None]
  - PAIN IN EXTREMITY [None]
  - VENOUS OCCLUSION [None]
